FAERS Safety Report 8344276-7 (Version None)
Quarter: 2012Q2

REPORT INFORMATION
  Report Type: 
  Country: None (occurrence: None)
  Receive Date: 20120508
  Receipt Date: 20090113
  Transmission Date: 20120825
  Serious: No
  Sender: FDA-Public Use
  Company Number: US-TEVA-US024704

PATIENT
  Sex: Male
  Weight: 98.7 kg

DRUGS (4)
  1. ATENOLOL [Concomitant]
  2. QUINAPRIL [Concomitant]
  3. TREANDA [Suspect]
     Indication: CHRONIC LYMPHOCYTIC LEUKAEMIA
  4. TREANDA [Suspect]
     Indication: NODAL MARGINAL ZONE B-CELL LYMPHOMA STAGE IV
     Dosage: 180 MG (90 MG/M2)
     Route: 042

REACTIONS (1)
  - EXTRAVASATION [None]
